FAERS Safety Report 4806595-8 (Version None)
Quarter: 2005Q4

REPORT INFORMATION
  Report Type: 
  Country: None (occurrence: None)
  Receive Date: 20051021
  Receipt Date: 20051013
  Transmission Date: 20060501
  Serious: Yes (Life-Threatening)
  Sender: FDA-Public Use
  Company Number: 200519173GDDC

PATIENT
  Age: 66 Year
  Sex: 0
  Weight: 43 kg

DRUGS (5)
  1. LANTUS [Suspect]
     Indication: DIABETES MELLITUS
  2. GLIBENCLAMIDE [Concomitant]
     Indication: DIABETES MELLITUS
     Dosage: DOSE: 3 TABS
     Route: 048
  3. VITAMIN B1 AND B6 [Concomitant]
     Dosage: DOSE: 3 TABS
     Route: 048
  4. ACETAMINOPHEN [Concomitant]
     Indication: PAIN
     Dosage: DOSE: 2 TABS
     Route: 048
  5. TEGRETOL [Concomitant]
     Indication: PAIN
     Dosage: DOSE: 1 TAB
     Route: 048

REACTIONS (11)
  - ANAPHYLACTOID REACTION [None]
  - DYSPNOEA [None]
  - EYELID OEDEMA [None]
  - FEELING HOT [None]
  - GENERALISED ERYTHEMA [None]
  - MUSCLE RIGIDITY [None]
  - MUSCULOSKELETAL STIFFNESS [None]
  - OEDEMA MOUTH [None]
  - PRURITUS [None]
  - RASH [None]
  - STEVENS-JOHNSON SYNDROME [None]
